FAERS Safety Report 7391894-9 (Version None)
Quarter: 2011Q2

REPORT INFORMATION
  Report Type: 
  Country: None (occurrence: None)
  Receive Date: 20110404
  Receipt Date: 20110329
  Transmission Date: 20111010
  Serious: Yes (Disabling)
  Sender: FDA-Public Use
  Company Number: US-ROXANE LABORATORIES, INC.-2011-RO-00425RO

PATIENT
  Age: 52 Year
  Sex: Male

DRUGS (2)
  1. PREDNISONE [Suspect]
     Route: 048
  2. METHYPREDNISOLONE [Suspect]
     Route: 042

REACTIONS (2)
  - ASTHENIA [None]
  - PARAPLEGIA [None]
